FAERS Safety Report 7284335-3 (Version None)
Quarter: 2011Q1

REPORT INFORMATION
  Report Type: 
  Country: None (occurrence: None)
  Receive Date: 20110209
  Receipt Date: 20110204
  Transmission Date: 20110831
  Serious: Yes (Other)
  Sender: FDA-Public Use
  Company Number: US-PFIZER INC-2011026305

PATIENT
  Sex: Male

DRUGS (1)
  1. PROCARDIA XL [Suspect]
     Dosage: 10 MG, 2X/DAY
     Route: 048

REACTIONS (5)
  - EXTRASYSTOLES [None]
  - PALPITATIONS [None]
  - HEADACHE [None]
  - HEART RATE INCREASED [None]
  - BLOOD PRESSURE INCREASED [None]
